FAERS Safety Report 9468039 (Version 1)
Quarter: 2013Q3

REPORT INFORMATION
  Report Type: Spontaneous
  Country: US (occurrence: US)
  Receive Date: 20130821
  Receipt Date: 20130821
  Transmission Date: 20140515
  Serious: Yes (Hospitalization, Other)
  Sender: FDA-Public Use
  Company Number: US-PFIZER INC-2013239204

PATIENT
  Age: 49 Year
  Sex: Female
  Weight: 53 kg

DRUGS (3)
  1. ADVIL [Suspect]
     Indication: PAIN
     Dosage: UNK
     Dates: start: 2012
  2. CIMZIA [Suspect]
     Indication: CROHN^S DISEASE
     Dosage: 200 MG, (ONCE IN 2 WEEKS)
     Dates: end: 201208
  3. CIMZIA [Suspect]
     Dosage: UNK
     Dates: start: 201211, end: 201305

REACTIONS (4)
  - Crohn^s disease [Unknown]
  - Rheumatoid arthritis [Unknown]
  - Gastrointestinal haemorrhage [Unknown]
  - Circumstance or information capable of leading to medication error [Unknown]
